FAERS Safety Report 20853748 (Version 2)
Quarter: 2022Q2

REPORT INFORMATION
  Report Type: Spontaneous
  Country: US (occurrence: US)
  Receive Date: 20220520
  Receipt Date: 20220606
  Transmission Date: 20220721
  Serious: No
  Sender: FDA-Public Use
  Company Number: US-OYSTER POINT PHARMA, INC.-2022OYS00456

PATIENT
  Sex: Female

DRUGS (5)
  1. TYRVAYA [Suspect]
     Active Substance: VARENICLINE TARTRATE
     Indication: Dry eye
     Dosage: UNK
     Dates: start: 2022, end: 20220215
  2. UNSPECIFIED INGREDIENT [Suspect]
     Active Substance: UNSPECIFIED INGREDIENT
  3. REFRESH MEGA-3 [Concomitant]
  4. SYSTANE ULTRA [Concomitant]
     Active Substance: POLYETHYLENE GLYCOL 400\PROPYLENE GLYCOL
  5. INSULIN NOS [Concomitant]
     Active Substance: INSULIN NOS

REACTIONS (26)
  - Mood altered [Recovering/Resolving]
  - Blood pressure decreased [Unknown]
  - Eye inflammation [Recovered/Resolved]
  - Eyelid margin crusting [Recovering/Resolving]
  - Eye discharge [Recovering/Resolving]
  - Ocular hyperaemia [Recovering/Resolving]
  - Visual impairment [Recovering/Resolving]
  - Conjunctivitis [Recovering/Resolving]
  - Eye pain [Recovering/Resolving]
  - Vitreous floaters [Not Recovered/Not Resolved]
  - Dry eye [Recovering/Resolving]
  - Ophthalmic migraine [Recovering/Resolving]
  - Scleral discolouration [Recovered/Resolved]
  - Skin exfoliation [Recovered/Resolved]
  - Skin haemorrhage [Recovered/Resolved]
  - Therapeutic response unexpected [Recovered/Resolved]
  - Wrong technique in product usage process [Recovered/Resolved]
  - Product delivery mechanism issue [Recovered/Resolved]
  - Muscle spasms [Recovered/Resolved]
  - Product dose omission issue [Recovered/Resolved]
  - Photophobia [Recovered/Resolved]
  - Drug ineffective [Recovered/Resolved]
  - Hypersensitivity [Unknown]
  - Vision blurred [Unknown]
  - Therapeutic product effect variable [Recovered/Resolved]
  - Device defective [Recovered/Resolved]

NARRATIVE: CASE EVENT DATE: 20220101
